FAERS Safety Report 5893860-9 (Version None)
Quarter: 2008Q3

REPORT INFORMATION
  Report Type: 
  Country: None (occurrence: None)
  Receive Date: 20080923
  Receipt Date: 20071113
  Transmission Date: 20090109
  Serious: No
  Sender: FDA-Public Use
  Company Number: US-ASTRAZENECA-2007UW26298

PATIENT
  Age: 18 Year
  Sex: Male
  Weight: 63.5 kg

DRUGS (10)
  1. SEROQUEL [Suspect]
     Indication: OBSESSIVE-COMPULSIVE DISORDER
     Route: 048
  2. SEROQUEL [Suspect]
     Indication: SLEEP DISORDER
     Route: 048
  3. SEROQUEL [Suspect]
     Route: 048
  4. SEROQUEL [Suspect]
     Route: 048
  5. ZOLOFT [Concomitant]
  6. TRILEPTAL [Concomitant]
  7. KEPPRA [Concomitant]
  8. SYNTHROID [Concomitant]
  9. SELBATOL [Concomitant]
  10. FRIZIA [Concomitant]

REACTIONS (2)
  - INSOMNIA RELATED TO ANOTHER MENTAL CONDITION [None]
  - OBSESSIVE-COMPULSIVE DISORDER [None]
